FAERS Safety Report 15005723 (Version 2)
Quarter: 2018Q2

REPORT INFORMATION
  Report Type: Report from Study
  Country: US (occurrence: US)
  Receive Date: 20180613
  Receipt Date: 20180625
  Transmission Date: 20180711
  Serious: Yes (Hospitalization)
  Sender: FDA-Public Use
  Company Number: PHHO2018US007093

PATIENT
  Age: 64 Year
  Sex: Female
  Weight: 103 kg

DRUGS (6)
  1. BLINDED NO TREATMENT RECEIVED [Suspect]
     Active Substance: INVESTIGATIONAL PRODUCT
     Indication: ACUTE MYOCARDIAL INFARCTION
     Dosage: CODE NOT BROKEN
     Route: 048
     Dates: start: 20180412, end: 20180604
  2. ATORVASTATIN [Suspect]
     Active Substance: ATORVASTATIN
     Indication: PRODUCT USED FOR UNKNOWN INDICATION
     Dosage: 80 MG, QD
     Route: 065
  3. DIOVAN [Suspect]
     Active Substance: VALSARTAN
     Indication: ACUTE MYOCARDIAL INFARCTION
     Dosage: CODE NOT BROKEN
     Route: 048
     Dates: start: 20180412, end: 20180604
  4. BLINDED RAMIPRIL [Suspect]
     Active Substance: RAMIPRIL
     Indication: ACUTE MYOCARDIAL INFARCTION
     Dosage: CODE NOT BROKEN
     Route: 048
     Dates: start: 20180412, end: 20180604
  5. BLINDED LCZ696 [Suspect]
     Active Substance: SACUBITRIL\VALSARTAN
     Indication: ACUTE MYOCARDIAL INFARCTION
     Dosage: CODE NOT BROKEN
     Route: 048
     Dates: start: 20180412, end: 20180604
  6. ACETAMINOPHEN. [Concomitant]
     Active Substance: ACETAMINOPHEN
     Indication: ARTHRITIS
     Dosage: 500 MG, PRN
     Route: 048
     Dates: start: 1995

REACTIONS (1)
  - Hepatic enzyme increased [Unknown]

NARRATIVE: CASE EVENT DATE: 20180605
